FAERS Safety Report 10449988 (Version 1)
Quarter: 2014Q3

REPORT INFORMATION
  Report Type: Spontaneous
  Country: GB (occurrence: None)
  Receive Date: 20140910
  Receipt Date: 20140910
  Transmission Date: 20150326
  Serious: Yes (Life-Threatening, Hospitalization, Disabling)
  Sender: FDA-Public Use
  Company Number: GB-DEXPHARM-20140592

PATIENT
  Age: 24 Year
  Sex: Female

DRUGS (1)
  1. CHLORHEXIDINE ACTIVE SUBSTANCES: CHLORHEXIDINE [Suspect]
     Active Substance: CHLORHEXIDINE
     Indication: INFECTION PROPHYLAXIS
     Route: 061
     Dates: start: 20140730, end: 20140730

REACTIONS (2)
  - Thermal burn [None]
  - Procedural complication [None]

NARRATIVE: CASE EVENT DATE: 20140307
